FAERS Safety Report 17067651 (Version 1)
Quarter: 2019Q4

REPORT INFORMATION
  Report Type: Spontaneous
  Country: US (occurrence: US)
  Receive Date: 20191122
  Receipt Date: 20191122
  Transmission Date: 20200122
  Serious: No
  Sender: FDA-Public Use
  Company Number: US-BIOGEN-2018BI00669332

PATIENT
  Sex: Male

DRUGS (11)
  1. ZANTAC [Concomitant]
     Active Substance: RANITIDINE HYDROCHLORIDE
  2. VITAMIN B12 [Concomitant]
     Active Substance: CYANOCOBALAMIN
  3. VITAMIN C [Concomitant]
     Active Substance: ASCORBIC ACID
  4. VITAMIN D3 [Concomitant]
     Active Substance: CHOLECALCIFEROL
  5. VITAMIN E [Concomitant]
     Active Substance: .ALPHA.-TOCOPHEROL
  6. COCONUT OIL [Concomitant]
     Active Substance: COCONUT OIL
  7. TECFIDERA [Suspect]
     Active Substance: DIMETHYL FUMARATE
     Indication: MULTIPLE SCLEROSIS
     Dosage: TAKE 1 CAPSULE BY MOUTH TWICE A DAY
     Route: 050
     Dates: start: 20180928, end: 20181115
  8. GABAPENTIN. [Concomitant]
     Active Substance: GABAPENTIN
  9. COD LIVER OIL [Concomitant]
     Active Substance: COD LIVER OIL
  10. VITAMIN B COMPLEX [Concomitant]
     Active Substance: CYANOCOBALAMIN\DEXPANTHENOL\NIACINAMIDE\PYRIDOXINE HYDROCHLORIDE\RIBOFLAVIN 5^-PHOSPHATE SODIUM\THIAMINE HYDROCHLORIDE\VITAMIN B COMPLEX
  11. STOOL SOFTENER (DOCUSATE) [Concomitant]
     Active Substance: DOCUSATE

REACTIONS (3)
  - Multiple sclerosis [Not Recovered/Not Resolved]
  - Hypersensitivity [Recovered/Resolved]
  - Headache [Not Recovered/Not Resolved]
